FAERS Safety Report 12071444 (Version 1)
Quarter: 2016Q1

REPORT INFORMATION
  Report Type: Not Available
  Country: US (occurrence: US)
  Receive Date: 20160211
  Receipt Date: 20160211
  Transmission Date: 20160526
  Serious: No
  Sender: FDA-Public Use
  Company Number: US-ANIPHARMA-2015-US-001137

PATIENT
  Age: 43 Year
  Sex: Female
  Weight: 81.65 kg

DRUGS (13)
  1. FISH OIL [Concomitant]
     Active Substance: FISH OIL
  2. VITAMIN D [Concomitant]
     Active Substance: CHOLECALCIFEROL
  3. BUPROPION. [Concomitant]
     Active Substance: BUPROPION
  4. BUSPIRONE [Concomitant]
     Active Substance: BUSPIRONE HYDROCHLORIDE
  5. HYDROCHLOROTHIAZIDE. [Concomitant]
     Active Substance: HYDROCHLOROTHIAZIDE
  6. ZOMIG [Concomitant]
     Active Substance: ZOLMITRIPTAN
  7. PRAZOSIN [Concomitant]
     Active Substance: PRAZOSIN
  8. REGLAN [Suspect]
     Active Substance: METOCLOPRAMIDE HYDROCHLORIDE
     Route: 048
  9. LISINOPRIL. [Concomitant]
     Active Substance: LISINOPRIL
  10. TOPAMAX [Concomitant]
     Active Substance: TOPIRAMATE
  11. CELEBREX [Concomitant]
     Active Substance: CELECOXIB
  12. DULOXETINE. [Concomitant]
     Active Substance: DULOXETINE
  13. PANTOPRAZOLE [Concomitant]
     Active Substance: PANTOPRAZOLE SODIUM

REACTIONS (1)
  - Oesophageal pain [Unknown]
